FAERS Safety Report 7446942 (Version 2)
Quarter: 2013Q3

REPORT INFORMATION
  Report Type: Spontaneous
  Country: US (occurrence: US)
  Receive Date: 20100629
  Receipt Date: 20130802
  Transmission Date: 20140515
  Serious: Yes (Other)
  Sender: FDA-Public Use
  Company Number: US-PFIZER INC-2009188282

PATIENT
  Age: 62 Year
  Sex: 0
  Weight: 99.8 kg

DRUGS (3)
  1. VIAGRA [Suspect]
     Indication: ERECTILE DYSFUNCTION
     Dosage: 50 MG, AS NEEDED
     Dates: start: 2004, end: 200901
  2. LIPITOR [Concomitant]
     Dosage: 40 MG, UNK
  3. MONOPRIL [Concomitant]

REACTIONS (7)
  - Deafness [Not Recovered/Not Resolved]
  - Visual impairment [Unknown]
  - Nasal congestion [Unknown]
  - Anxiety [Not Recovered/Not Resolved]
  - Weight decreased [Unknown]
  - Blood pressure decreased [Not Recovered/Not Resolved]
  - Drug ineffective [Unknown]
